FAERS Safety Report 9291615 (Version 2)
Quarter: 2013Q2

REPORT INFORMATION
  Report Type: Spontaneous
  Country: IT (occurrence: IT)
  Receive Date: 20130515
  Receipt Date: 20130603
  Transmission Date: 20140414
  Serious: Yes (Death)
  Sender: FDA-Public Use
  Company Number: IT-GLAXOSMITHKLINE-B0891788A

PATIENT
  Age: 46 Year
  Sex: Male

DRUGS (2)
  1. SEREUPIN [Suspect]
     Indication: DEPRESSION
     Dosage: 10MG PER DAY
     Route: 048
     Dates: start: 20130404, end: 20130406
  2. LEXOTAN [Suspect]
     Indication: DEPRESSION
     Dosage: 2.5MGML AS REQUIRED
     Dates: start: 20130404, end: 20130406

REACTIONS (3)
  - Completed suicide [Fatal]
  - Headache [Unknown]
  - Suicidal ideation [Unknown]
